FAERS Safety Report 8195646-1 (Version None)
Quarter: 2012Q1

REPORT INFORMATION
  Report Type: 
  Country: None (occurrence: None)
  Receive Date: 20120308
  Receipt Date: 20120302
  Transmission Date: 20120608
  Serious: Yes (Other)
  Sender: FDA-Public Use
  Company Number: CH-ROXANE LABORATORIES, INC.-2012-RO-00777RO

PATIENT
  Age: 44 Year

DRUGS (4)
  1. CALCIUM CARBONATE [Suspect]
     Indication: HYPOCALCAEMIA
  2. VITAMIN D [Suspect]
     Indication: HYPOPARATHYROIDISM
  3. VITAMIN D [Suspect]
     Indication: HYPOCALCAEMIA
  4. CALCIUM CARBONATE [Suspect]
     Indication: HYPOPARATHYROIDISM

REACTIONS (1)
  - NEPHROCALCINOSIS [None]
